FAERS Safety Report 13835301 (Version 3)
Quarter: 2017Q3

REPORT INFORMATION
  Report Type: Spontaneous
  Country: JP (occurrence: JP)
  Receive Date: 20170804
  Receipt Date: 20170912
  Transmission Date: 20171127
  Serious: Yes (Death, Life-Threatening, Hospitalization, Other)
  Sender: FDA-Public Use
  Company Number: JP-009507513-1706JPN001802J

PATIENT
  Age: 68 Year
  Sex: Male
  Weight: 47 kg

DRUGS (7)
  1. OXYCONTIN [Concomitant]
     Active Substance: OXYCODONE HYDROCHLORIDE
     Indication: LUNG ADENOCARCINOMA
     Dosage: 30.0 MG, QD
     Route: 048
     Dates: start: 20161102, end: 20170620
  2. NAIXAN [Concomitant]
     Active Substance: NAPROXEN SODIUM
     Indication: LUNG ADENOCARCINOMA
     Dosage: 100.0 MG, BID
     Route: 048
     Dates: start: 20161209, end: 20170620
  3. NEXIUM [Concomitant]
     Active Substance: ESOMEPRAZOLE MAGNESIUM
     Indication: PROPHYLAXIS
     Dosage: 10.0 MG, QD
     Route: 048
  4. MAGNESIUM OXIDE (+) MELATONIN [Concomitant]
     Indication: PROPHYLAXIS
     Dosage: 330.0 MG, TID
     Route: 048
     Dates: end: 20170616
  5. KEYTRUDA [Suspect]
     Active Substance: PEMBROLIZUMAB
     Indication: LUNG ADENOCARCINOMA
     Dosage: 200 MG, Q3W
     Route: 041
     Dates: start: 20170421, end: 20170512
  6. WARFARIN [Concomitant]
     Active Substance: WARFARIN
     Dosage: 4.5 MG, QD
     Route: 048
     Dates: end: 20170611
  7. OLMETEC [Concomitant]
     Active Substance: OLMESARTAN MEDOXOMIL
     Dosage: 40.0 MG, QD
     Route: 048
     Dates: end: 20170616

REACTIONS (5)
  - Blood creatine phosphokinase increased [Recovered/Resolved]
  - Interstitial lung disease [Fatal]
  - Hepatic function abnormal [Recovered/Resolved]
  - Stomatitis [Recovered/Resolved]
  - Urticaria [Recovering/Resolving]

NARRATIVE: CASE EVENT DATE: 20170515
